FAERS Safety Report 8550488-X (Version None)
Quarter: 2012Q3

REPORT INFORMATION
  Report Type: 
  Country: None (occurrence: None)
  Receive Date: 20120730
  Receipt Date: 20120716
  Transmission Date: 20120928
  Serious: Yes (Other)
  Sender: FDA-Public Use
  Company Number: US-ELI_LILLY_AND_COMPANY-US201204005536

PATIENT
  Sex: Male

DRUGS (3)
  1. CLONAZEPAM [Concomitant]
     Indication: ANXIETY
     Dosage: UNK, PRN
  2. TYLENOL                                 /SCH/ [Concomitant]
  3. CYMBALTA [Suspect]
     Indication: DEPRESSION
     Dosage: 60 MG, QD

REACTIONS (9)
  - ARTHRALGIA [None]
  - MOBILITY DECREASED [None]
  - ROTATOR CUFF SYNDROME [None]
  - DEPRESSION [None]
  - ANXIETY [None]
  - OSTEOARTHRITIS [None]
  - DRUG INTERACTION [None]
  - TINNITUS [None]
  - HALLUCINATION [None]
